FAERS Safety Report 5885371-1 (Version None)
Quarter: 2008Q3

REPORT INFORMATION
  Report Type: 
  Country: None (occurrence: None)
  Receive Date: 20080916
  Receipt Date: 20080904
  Transmission Date: 20090109
  Serious: Yes (Other)
  Sender: FDA-Public Use
  Company Number: DE-PFIZER INC-2008075052

PATIENT
  Sex: Male

DRUGS (1)
  1. LYRICA [Suspect]
     Indication: DIABETIC NEUROPATHY
     Route: 048
     Dates: start: 20080411, end: 20080619

REACTIONS (4)
  - CONJUNCTIVITIS [None]
  - POLLAKIURIA [None]
  - TONGUE OEDEMA [None]
  - VISUAL FIELD DEFECT [None]
